FAERS Safety Report 4930518-4 (Version None)
Quarter: 2006Q1

REPORT INFORMATION
  Report Type: 
  Country: None (occurrence: None)
  Receive Date: 20060302
  Receipt Date: 20050218
  Transmission Date: 20060701
  Serious: Yes (Hospitalization, Disabling)
  Sender: FDA-Public Use
  Company Number: US-MERCK-0502USA02870

PATIENT
  Age: 53 Year
  Sex: Male
  Weight: 135 kg

DRUGS (8)
  1. VIOXX [Suspect]
     Indication: OSTEOARTHRITIS
     Route: 048
     Dates: end: 20040909
  2. VIOXX [Suspect]
     Route: 048
     Dates: start: 20000301
  3. VIOXX [Suspect]
     Route: 048
     Dates: start: 20000201
  4. VIOXX [Suspect]
     Route: 048
     Dates: start: 20030901
  5. VIOXX [Suspect]
     Indication: BURSITIS
     Route: 048
     Dates: end: 20040909
  6. VIOXX [Suspect]
     Route: 048
     Dates: start: 20000301
  7. VIOXX [Suspect]
     Route: 048
     Dates: start: 20000201
  8. VIOXX [Suspect]
     Route: 048
     Dates: start: 20030901

REACTIONS (15)
  - BRONCHITIS [None]
  - CHRONIC OBSTRUCTIVE PULMONARY DISEASE [None]
  - CORONARY ARTERY DISEASE [None]
  - DEPRESSION [None]
  - HYPERLIPIDAEMIA [None]
  - HYPERTENSION [None]
  - METABOLIC SYNDROME [None]
  - MYOCARDIAL INFARCTION [None]
  - NASOPHARYNGITIS [None]
  - NODULE [None]
  - ONYCHOMYCOSIS [None]
  - PROSTATIC SPECIFIC ANTIGEN INCREASED [None]
  - SLEEP APNOEA SYNDROME [None]
  - TINEA PEDIS [None]
  - UPPER RESPIRATORY TRACT INFECTION [None]
